FAERS Safety Report 10527975 (Version 1)
Quarter: 2014Q4

REPORT INFORMATION
  Report Type: Spontaneous
  Country: US (occurrence: US)
  Receive Date: 20141020
  Receipt Date: 20141020
  Transmission Date: 20150528
  Serious: Yes (Other)
  Sender: FDA-Public Use
  Company Number: US-MYLANLABS-2014M1007505

PATIENT

DRUGS (6)
  1. OLANZAPINE. [Concomitant]
     Active Substance: OLANZAPINE
     Indication: SCHIZOAFFECTIVE DISORDER
     Dosage: 20 MG, QD
     Route: 065
  2. VALPROATE SEMISODIUM [Concomitant]
     Active Substance: DIVALPROEX SODIUM
     Indication: SCHIZOAFFECTIVE DISORDER
     Dosage: FORMULATION: EXTENDED RELEASE; AT BED TIME
     Route: 065
  3. GABAPENTIN. [Concomitant]
     Active Substance: GABAPENTIN
     Indication: SCHIZOAFFECTIVE DISORDER
     Dosage: 900 MG, BID
     Route: 065
  4. CLOZAPINE. [Suspect]
     Active Substance: CLOZAPINE
     Indication: SCHIZOAFFECTIVE DISORDER
     Dosage: 100 MG, QD
     Route: 065
  5. CLOZAPINE. [Suspect]
     Active Substance: CLOZAPINE
     Dosage: 300 MG, HS
  6. FLUPHENAZINE [Suspect]
     Active Substance: FLUPHENAZINE
     Dosage: 10 MG, QD
     Route: 065

REACTIONS (4)
  - Frustration [Unknown]
  - Dysphagia [Unknown]
  - Dysarthria [Unknown]
  - Salivary hypersecretion [Unknown]
